FAERS Safety Report 4285421-2 (Version None)
Quarter: 2004Q1

REPORT INFORMATION
  Report Type: 
  Country: None (occurrence: None)
  Receive Date: 20040203
  Receipt Date: 20040203
  Transmission Date: 20041129
  Serious: Yes (Life-Threatening)
  Sender: FDA-Public Use
  Company Number: None

PATIENT
  Age: 35 Year
  Sex: Male
  Weight: 65 kg

DRUGS (7)
  1. PROLEUKIN [Suspect]
     Indication: MALIGNANT MELANOMA
     Dosage: 9/MU/M2 IV
     Route: 042
     Dates: start: 20030806, end: 20030807
  2. CISPLATIN [Concomitant]
  3. DACARBAZINE [Concomitant]
  4. INTERFERON [Concomitant]
  5. ONDANSETRON [Concomitant]
  6. ACETAMINOPHEN [Concomitant]
  7. NEUPROXEN [Concomitant]

REACTIONS (1)
  - ATRIAL FIBRILLATION [None]
